FAERS Safety Report 6106844-2 (Version None)
Quarter: 2009Q1

REPORT INFORMATION
  Report Type: 
  Country: None (occurrence: None)
  Receive Date: 20090303
  Receipt Date: 20090219
  Transmission Date: 20090719
  Serious: Yes (Other)
  Sender: FDA-Public Use
  Company Number: 2009AL001036

PATIENT
  Age: 71 Year
  Sex: Male

DRUGS (5)
  1. TRAMADOL HCL [Suspect]
     Indication: PAIN
     Dosage: 50 MG; BID
     Dates: start: 20090101, end: 20090101
  2. DICLOFENAC SODIUM [Suspect]
     Indication: PAIN
     Dates: end: 20090101
  3. CODEINE [Concomitant]
  4. REQUIP [Concomitant]
  5. MADOPAR [Concomitant]

REACTIONS (3)
  - ASTHENIA [None]
  - HALLUCINATION [None]
  - LETHARGY [None]
